FAERS Safety Report 4731721-9 (Version None)
Quarter: 2005Q3

REPORT INFORMATION
  Report Type: 
  Country: None (occurrence: None)
  Receive Date: 20050725
  Receipt Date: 20041207
  Transmission Date: 20060218
  Serious: Yes (Disabling)
  Sender: FDA-Public Use
  Company Number: WAES 0306USA00833

PATIENT
  Age: 57 Year
  Sex: Male

DRUGS (2)
  1. VIOXX [Suspect]
     Dosage: PO
     Route: 048
  2. XANAX [Concomitant]

REACTIONS (2)
  - ADVERSE EVENT [None]
  - HYPOTHYROIDISM [None]
